FAERS Safety Report 13638447 (Version 1)
Quarter: 2017Q2

REPORT INFORMATION
  Report Type: Report from Study
  Country: GB (occurrence: GB)
  Receive Date: 20170609
  Receipt Date: 20170609
  Transmission Date: 20170830
  Serious: Yes (Death)
  Sender: FDA-Public Use
  Company Number: GB-VERTEX PHARMACEUTICALS-2017-002997

PATIENT
  Age: 35 Year
  Sex: Male
  Weight: 52 kg

DRUGS (28)
  1. AMINOPHYLLINE HYDRATE [Concomitant]
     Active Substance: AMINOPHYLLINE
     Indication: INFECTIVE PULMONARY EXACERBATION OF CYSTIC FIBROSIS
     Dosage: OVERNIGHT
     Dates: start: 20160817
  2. COLOMYCIN [Concomitant]
     Active Substance: COLISTIN
  3. AZTREONAM. [Concomitant]
     Active Substance: AZTREONAM
  4. ERYTHROMYCIN. [Concomitant]
     Active Substance: ERYTHROMYCIN
  5. IPRATROPIUM [Concomitant]
     Active Substance: IPRATROPIUM
  6. DORNASE ALFA [Concomitant]
     Active Substance: DORNASE ALFA
  7. THIAMINE. [Concomitant]
     Active Substance: THIAMINE
  8. URSODEOXYCHOLIC ACID [Concomitant]
     Active Substance: URSODIOL
  9. CREON [Concomitant]
     Active Substance: PANCRELIPASE AMYLASE\PANCRELIPASE LIPASE\PANCRELIPASE PROTEASE
  10. INSULIN GLARGINE [Concomitant]
     Active Substance: INSULIN GLARGINE
  11. PREDNISOLONE. [Concomitant]
     Active Substance: PREDNISOLONE
  12. CALCICHEW D3 [Concomitant]
     Active Substance: CALCIUM\CHOLECALCIFEROL
  13. MIRTAZAPINE HYDROCHLORIDE [Concomitant]
     Active Substance: MIRTAZAPINE
  14. INDACATEROL [Concomitant]
     Active Substance: INDACATEROL
  15. PARACETAMOL [Concomitant]
     Active Substance: ACETAMINOPHEN
  16. MENADIOL [Concomitant]
     Active Substance: MENADIOL
  17. DOCUSATE [Concomitant]
     Active Substance: DOCUSATE
  18. CIPROFLOXACIN. [Concomitant]
     Active Substance: CIPROFLOXACIN
  19. LACTULOSE. [Concomitant]
     Active Substance: LACTULOSE
  20. OMEPRAZOLE. [Concomitant]
     Active Substance: OMEPRAZOLE
  21. VITAMIN E [Concomitant]
     Active Substance: .ALPHA.-TOCOPHEROL
  22. QUETIAPINE FUMARATE. [Concomitant]
     Active Substance: QUETIAPINE FUMARATE
  23. ORKAMBI [Suspect]
     Active Substance: IVACAFTOR\LUMACAFTOR
     Indication: CYSTIC FIBROSIS
     Dosage: 1 DF, BID
     Route: 048
     Dates: start: 20160905, end: 20160912
  24. ORKAMBI [Suspect]
     Active Substance: IVACAFTOR\LUMACAFTOR
     Dosage: 2 DF, BID
     Route: 048
     Dates: start: 20160913, end: 20160922
  25. COLECALCIFEROL [Concomitant]
     Active Substance: CHOLECALCIFEROL
  26. TOBRAMYCIN SULPHATE [Concomitant]
     Indication: INFECTIVE PULMONARY EXACERBATION OF CYSTIC FIBROSIS
     Route: 042
     Dates: start: 20160817
  27. MEROPENEM. [Concomitant]
     Active Substance: MEROPENEM
     Indication: INFECTIVE PULMONARY EXACERBATION OF CYSTIC FIBROSIS
     Route: 042
     Dates: start: 20160817
  28. AZITHROMYCIN ANHYDROUS. [Concomitant]
     Active Substance: AZITHROMYCIN ANHYDROUS

REACTIONS (8)
  - Acute respiratory failure [Fatal]
  - Sputum discoloured [Not Recovered/Not Resolved]
  - Dyspnoea [Not Recovered/Not Resolved]
  - Sputum increased [Not Recovered/Not Resolved]
  - Chest discomfort [Not Recovered/Not Resolved]
  - Cardiac failure congestive [Fatal]
  - Tachycardia [Not Recovered/Not Resolved]
  - Acidosis [Not Recovered/Not Resolved]

NARRATIVE: CASE EVENT DATE: 201609
